FAERS Safety Report 7688969-3 (Version None)
Quarter: 2011Q3

REPORT INFORMATION
  Report Type: 
  Country: None (occurrence: None)
  Receive Date: 20110817
  Receipt Date: 20110812
  Transmission Date: 20111222
  Serious: Yes (Death)
  Sender: FDA-Public Use
  Company Number: PHEH2011US01433

PATIENT
  Sex: Male

DRUGS (3)
  1. METHOTREXATE [Concomitant]
  2. TEKTURNA [Suspect]
     Dosage: 150 MG, UNK
  3. PREDNISONE [Concomitant]

REACTIONS (1)
  - DEATH [None]
